FAERS Safety Report 8365627-3 (Version None)
Quarter: 2012Q2

REPORT INFORMATION
  Report Type: 
  Country: None (occurrence: None)
  Receive Date: 20120516
  Receipt Date: 20120510
  Transmission Date: 20120825
  Serious: Yes (Other)
  Sender: FDA-Public Use
  Company Number: PT-MERCK-1205USA02276

PATIENT
  Age: 83 Year
  Sex: Male

DRUGS (6)
  1. LISINOPRIL [Concomitant]
     Dosage: 5
     Route: 065
     Dates: start: 20070101
  2. ZETIA [Suspect]
     Indication: DYSLIPIDAEMIA
     Route: 048
     Dates: start: 20070101, end: 20120201
  3. ISOSORBIDE MONONITRATE [Concomitant]
     Route: 065
     Dates: start: 20070101
  4. CLOPIDOGREL [Concomitant]
     Route: 065
     Dates: start: 20070101
  5. ESOMEPRAZOLE [Concomitant]
     Dosage: 40
     Route: 065
     Dates: start: 20070101
  6. ASPIRIN [Concomitant]
     Route: 065
     Dates: start: 20070101

REACTIONS (2)
  - DIARRHOEA [None]
  - WEIGHT DECREASED [None]
